FAERS Safety Report 21831548 (Version 1)
Quarter: 2023Q1

REPORT INFORMATION
  Report Type: Report from Study
  Country: US (occurrence: None)
  Receive Date: 20230106
  Receipt Date: 20230106
  Transmission Date: 20230418
  Serious: Yes (Other)
  Sender: FDA-Public Use
  Company Number: 2022A339129

PATIENT
  Age: 27981 Day
  Sex: Female
  Weight: 73 kg

DRUGS (20)
  1. TAGRISSO [Suspect]
     Active Substance: OSIMERTINIB
     Indication: Lung carcinoma cell type unspecified stage 0
     Route: 048
     Dates: start: 20200414
  2. TAGRISSO [Suspect]
     Active Substance: OSIMERTINIB
     Indication: Lung carcinoma cell type unspecified stage 0
     Route: 048
     Dates: start: 20220519
  3. METOPROLOL TARTRATE [Suspect]
     Active Substance: METOPROLOL TARTRATE
     Route: 048
     Dates: start: 20201217
  4. ASPIRIN [Concomitant]
     Active Substance: ASPIRIN
  5. VITAMIN C [Concomitant]
     Active Substance: ASCORBIC ACID
  6. CEPHALEXIN [Concomitant]
     Active Substance: CEPHALEXIN
  7. CYANOCOBALAMIN [Concomitant]
     Active Substance: CYANOCOBALAMIN
  8. VITAMIN D2 [Concomitant]
     Active Substance: ERGOCALCIFEROL
  9. LEXAPRO [Concomitant]
     Active Substance: ESCITALOPRAM OXALATE
  10. METFORMIN HYDROCHLORIDE [Concomitant]
     Active Substance: METFORMIN HYDROCHLORIDE
  11. STIOLTO RESPIMAT [Concomitant]
     Active Substance: OLODATEROL HYDROCHLORIDE\TIOTROPIUM BROMIDE MONOHYDRATE
  12. EVENING PRIMROSE [Concomitant]
  13. OXYBUTYNIN CHLORIDE [Concomitant]
     Active Substance: OXYBUTYNIN CHLORIDE
  14. PANTOPRAZOLE SODIUM [Concomitant]
     Active Substance: PANTOPRAZOLE SODIUM
  15. PHENAZOPYRIDINE HCL [Concomitant]
     Active Substance: PHENAZOPYRIDINE HYDROCHLORIDE
  16. ROSUVASTATIN CALCIUM [Concomitant]
     Active Substance: ROSUVASTATIN CALCIUM
     Dates: start: 20201006
  17. JANUVIA [Concomitant]
     Active Substance: SITAGLIPTIN PHOSPHATE
  18. VESICARE [Concomitant]
     Active Substance: SOLIFENACIN SUCCINATE
  19. TRIMETHOPRIM [Concomitant]
     Active Substance: TRIMETHOPRIM
  20. COQ [Concomitant]

REACTIONS (18)
  - Vocal cord paralysis [Unknown]
  - Transient ischaemic attack [Unknown]
  - Thrombocytopenia [Unknown]
  - Pulmonary mass [Unknown]
  - Tumour marker increased [Unknown]
  - Pulmonary thrombosis [Unknown]
  - Osteopenia [Unknown]
  - Breast disorder [Unknown]
  - Diarrhoea [Not Recovered/Not Resolved]
  - Alopecia [Unknown]
  - Rash pruritic [Unknown]
  - Fatigue [Unknown]
  - Weight decreased [Unknown]
  - Urinary tract infection [Unknown]
  - Blood magnesium decreased [Unknown]
  - Vitamin D deficiency [Unknown]
  - Vulvovaginal dryness [Unknown]
  - Vitamin B12 decreased [Unknown]

NARRATIVE: CASE EVENT DATE: 20211116
